FAERS Safety Report 9165423 (Version 1)
Quarter: 2013Q1

REPORT INFORMATION
  Report Type: Spontaneous
  Country: CA (occurrence: CA)
  Receive Date: 20130315
  Receipt Date: 20130315
  Transmission Date: 20140127
  Serious: Yes (Other)
  Sender: FDA-Public Use
  Company Number: PHHY2013CA025219

PATIENT
  Sex: Female

DRUGS (3)
  1. ACLASTA [Suspect]
     Indication: OSTEOPOROSIS POSTMENOPAUSAL
     Dosage: 5 MG/ 100 ML
     Route: 042
     Dates: start: 20121127
  2. CALCIUM [Concomitant]
     Dosage: UNK
  3. VIT D [Concomitant]
     Dosage: UNK

REACTIONS (1)
  - Type 1 diabetes mellitus [Unknown]
